FAERS Safety Report 9474721 (Version 2)
Quarter: 2014Q1

REPORT INFORMATION
  Report Type: Spontaneous
  Country: IT (occurrence: IT)
  Receive Date: 20130823
  Receipt Date: 20140210
  Transmission Date: 20141002
  Serious: Yes (Life-Threatening)
  Sender: FDA-Public Use
  Company Number: IT-ACTAVIS-2013-15234

PATIENT
  Age: 87 Year
  Sex: Female

DRUGS (1)
  1. CLOPIDOGREL BESYLATE (UNKNOWN) [Suspect]
     Indication: PRODUCT USED FOR UNKNOWN INDICATION
     Dosage: 75 MG, DAILY
     Route: 048
     Dates: start: 20130531, end: 20130604

REACTIONS (2)
  - Laryngospasm [Recovered/Resolved]
  - Urticaria [Recovered/Resolved]
